FAERS Safety Report 8445682-2 (Version None)
Quarter: 2012Q2

REPORT INFORMATION
  Report Type: 
  Country: None (occurrence: None)
  Receive Date: 20120611
  Receipt Date: 20120524
  Transmission Date: 20120825
  Serious: Yes (Life-Threatening)
  Sender: FDA-Public Use
  Company Number: FR-20120109

PATIENT
  Age: 45 Year
  Sex: Male

DRUGS (1)
  1. HEXABRIX [Suspect]
     Indication: ARTERIOGRAM CORONARY
     Dosage: (2 IN 1 TOTAL)
     Route: 042
     Dates: start: 20120424, end: 20120424

REACTIONS (4)
  - WHEEZING [None]
  - CHEST DISCOMFORT [None]
  - HYPERTENSION [None]
  - OROPHARYNGEAL DISCOMFORT [None]
